FAERS Safety Report 8244596-0 (Version None)
Quarter: 2012Q1

REPORT INFORMATION
  Report Type: 
  Country: None (occurrence: None)
  Receive Date: 20120329
  Receipt Date: 20120321
  Transmission Date: 20120608
  Serious: Yes (Other)
  Sender: FDA-Public Use
  Company Number: US-CELGENEUS-163-21660-12032437

PATIENT

DRUGS (1)
  1. ABRAXANE [Suspect]
     Route: 041

REACTIONS (1)
  - GLOMERULAR FILTRATION RATE DECREASED [None]
